FAERS Safety Report 12364489 (Version 2)
Quarter: 2016Q2

REPORT INFORMATION
  Report Type: Spontaneous
  Country: IT (occurrence: IT)
  Receive Date: 20160513
  Receipt Date: 20160516
  Transmission Date: 20160815
  Serious: Yes (Death)
  Sender: FDA-Public Use
  Company Number: IT-JNJFOC-20160509884

PATIENT
  Age: 71 Year
  Sex: Male
  Weight: 65 kg

DRUGS (3)
  1. XARELTO [Suspect]
     Active Substance: RIVAROXABAN
     Indication: ATRIAL FIBRILLATION
     Route: 048
     Dates: start: 20160317, end: 20160318
  2. ALMARYTM [Concomitant]
     Active Substance: FLECAINIDE ACETATE
     Route: 048
     Dates: start: 20160315, end: 20160318
  3. XARELTO [Suspect]
     Active Substance: RIVAROXABAN
     Indication: CEREBROVASCULAR ACCIDENT PROPHYLAXIS
     Route: 048
     Dates: start: 20160317, end: 20160318

REACTIONS (3)
  - Coma [Fatal]
  - Hemiplegia [Fatal]
  - Death [Fatal]

NARRATIVE: CASE EVENT DATE: 20160318
